FAERS Safety Report 11320026 (Version 3)
Quarter: 2015Q4

REPORT INFORMATION
  Report Type: Spontaneous
  Country: US (occurrence: US)
  Receive Date: 20150729
  Receipt Date: 20151201
  Transmission Date: 20160304
  Serious: Yes (Hospitalization)
  Sender: FDA-Public Use
  Company Number: US-PFIZER INC-2015249960

PATIENT
  Age: 81 Year
  Sex: Female
  Weight: 84 kg

DRUGS (22)
  1. SINEMET [Concomitant]
     Active Substance: CARBIDOPA\LEVODOPA
     Dosage: 10-100 MG PER TABLET; TAKE 1 TABLET BY MOUTH DAILY AS NEEDED
     Route: 048
  2. FLAXSEED [Concomitant]
     Active Substance: FLAX SEED
     Dosage: 1000 MG, DAILY
     Route: 048
  3. MELATONIN [Concomitant]
     Active Substance: MELATONIN
     Dosage: 3 MG, 1X/DAY (AT BEDTIME)
     Route: 048
  4. DELTASONE [Concomitant]
     Active Substance: PREDNISONE
     Dosage: 1 MG, DAILY
     Route: 048
  5. PROZAC [Concomitant]
     Active Substance: FLUOXETINE HYDROCHLORIDE
     Dosage: 20 MG, DAILY
     Route: 048
  6. NORCO [Concomitant]
     Active Substance: ACETAMINOPHEN\HYDROCODONE BITARTRATE
     Dosage: 0.5 TABLET BY MOUTH EVERY 6 HOURS AS NEEDED
     Route: 048
  7. OPSUMIT [Concomitant]
     Active Substance: MACITENTAN
     Dosage: 10 MG, DAILY
     Route: 048
  8. REVATIO [Suspect]
     Active Substance: SILDENAFIL CITRATE
     Indication: PULMONARY ARTERIAL HYPERTENSION
     Dosage: 20 MG, 3X/DAY
  9. CARDIZEM CD [Concomitant]
     Active Substance: DILTIAZEM HYDROCHLORIDE
     Dosage: 120 MG, 2X/DAY
     Route: 048
  10. DOLOPHINE [Concomitant]
     Active Substance: METHADONE HYDROCHLORIDE
     Dosage: 5 MG, 4X/DAY
     Route: 048
  11. PRAVACHOL [Concomitant]
     Active Substance: PRAVASTATIN SODIUM
     Dosage: 40 MG, DAILY
     Route: 048
  12. XANAX [Concomitant]
     Active Substance: ALPRAZOLAM
     Dosage: 0.25 MG TABLET, TAKE 1 TABLET BY MOUTH DAILY AS NEEDED
     Route: 048
  13. VITAMIN D2 [Concomitant]
     Active Substance: ERGOCALCIFEROL
     Dosage: 2000 IU, DAILY
     Route: 048
  14. BONIVA [Concomitant]
     Active Substance: IBANDRONATE SODIUM
     Dosage: INJECT 3 MG INTO THE VEIN, EVERY 3 MONTHS
     Route: 042
  15. VITAMIN C [Concomitant]
     Active Substance: ASCORBIC ACID
     Dosage: 1000 MG, 1X/DAY
     Route: 048
  16. IRON [Concomitant]
     Active Substance: IRON
     Dosage: 325 MG, DAILY
     Route: 048
  17. REVATIO [Suspect]
     Active Substance: SILDENAFIL CITRATE
     Indication: PULMONARY HYPERTENSION
     Dosage: 1.5 TABLETS (30MG TOTAL), 3 TIMES A DAY
     Route: 048
  18. PRILOSEC [Concomitant]
     Active Substance: OMEPRAZOLE MAGNESIUM
     Dosage: 20 MG, DAILY
     Route: 048
  19. LASIX [Concomitant]
     Active Substance: FUROSEMIDE
     Dosage: 40 MG, DAILY
     Route: 048
  20. KLOR-CON M20 [Concomitant]
     Active Substance: POTASSIUM CHLORIDE
     Dosage: 20 MEQ, DAILY
     Route: 048
  21. VITAMIN B6 [Concomitant]
     Active Substance: PYRIDOXINE HYDROCHLORIDE
     Dosage: 100 MG, DAILY
     Route: 048
  22. AMBIEN [Concomitant]
     Active Substance: ZOLPIDEM TARTRATE
     Dosage: 10 MG, AS NEEDED (AT BEDTIME)
     Route: 048

REACTIONS (2)
  - Arthropathy [Recovering/Resolving]
  - Product use issue [Unknown]

NARRATIVE: CASE EVENT DATE: 20150612
